FAERS Safety Report 26067234 (Version 2)
Quarter: 2025Q4

REPORT INFORMATION
  Report Type: Report from Study
  Country: CA (occurrence: CA)
  Receive Date: 20251120
  Receipt Date: 20251128
  Transmission Date: 20260117
  Serious: Yes (Hospitalization, Other)
  Sender: ABBVIE
  Company Number: CA-ABBVIE-6553797

PATIENT
  Age: 49 Year
  Sex: Female

DRUGS (2)
  1. RINVOQ [Suspect]
     Active Substance: UPADACITINIB
     Indication: Dermatitis atopic
     Dosage: FORM STRENGTH: 15 MILLIGRAM
     Route: 048
     Dates: start: 20241116, end: 2025
  2. RINVOQ [Suspect]
     Active Substance: UPADACITINIB
     Indication: Dermatitis atopic
     Dosage: FORM STRENGTH: 15 MILLIGRAM
     Route: 048
     Dates: start: 202511

REACTIONS (8)
  - Injury [Recovering/Resolving]
  - Back pain [Recovering/Resolving]
  - Intervertebral disc protrusion [Recovering/Resolving]
  - Nerve compression [Recovering/Resolving]
  - Paraplegia [Recovering/Resolving]
  - Functional gastrointestinal disorder [Recovering/Resolving]
  - Bladder dysfunction [Recovering/Resolving]
  - Fall [Recovering/Resolving]

NARRATIVE: CASE EVENT DATE: 20250901
